FAERS Safety Report 15220897 (Version 1)
Quarter: 2018Q3

REPORT INFORMATION
  Report Type: Spontaneous
  Country: US (occurrence: US)
  Receive Date: 20180731
  Receipt Date: 20180731
  Transmission Date: 20181010
  Serious: Yes (Hospitalization, Other)
  Sender: FDA-Public Use
  Company Number: US-BAYER-2018-138368

PATIENT
  Age: 33 Year
  Sex: Female

DRUGS (1)
  1. PARACETAMOL [Suspect]
     Active Substance: ACETAMINOPHEN
     Indication: SUICIDE ATTEMPT
     Dosage: 30 G, UNK

REACTIONS (12)
  - Acute lung injury [Recovered/Resolved]
  - Toxicity to various agents [Recovered/Resolved]
  - Foetal heart rate deceleration abnormality [Unknown]
  - Foetal death [Unknown]
  - Coagulopathy [Recovered/Resolved]
  - Cardiac failure congestive [Recovered/Resolved]
  - Acute kidney injury [Recovered/Resolved]
  - Exposure during pregnancy [Unknown]
  - International normalised ratio increased [Recovered/Resolved]
  - Acidosis [Recovered/Resolved]
  - Intentional overdose [Unknown]
  - Acute hepatic failure [Recovered/Resolved]
